FAERS Safety Report 4906261-4 (Version None)
Quarter: 2006Q1

REPORT INFORMATION
  Report Type: 
  Country: None (occurrence: None)
  Receive Date: 20060207
  Receipt Date: 20060127
  Transmission Date: 20060701
  Serious: Yes (Life-Threatening, Hospitalization, Other)
  Sender: FDA-Public Use
  Company Number: 2004112033

PATIENT
  Age: 69 Year
  Sex: Male

DRUGS (6)
  1. ATORVASTATIN CALCIUM [Suspect]
     Indication: DYSLIPIDAEMIA
     Dosage: 10 MG (10 MG,1 IN 1 D), ORAL
     Route: 048
     Dates: start: 20040903
  2. MONOCORDIL (ISOSORBIDE MONONITRATE) [Concomitant]
  3. LASIX [Concomitant]
  4. METOPROLOL SUCCINATE [Concomitant]
  5. ISORDIL [Concomitant]
  6. LOSARTAN POTASSIUM [Concomitant]

REACTIONS (5)
  - CHEST PAIN [None]
  - DIFFICULTY IN WALKING [None]
  - DISCOMFORT [None]
  - DYSENTERY [None]
  - MYOCARDIAL INFARCTION [None]
